FAERS Safety Report 11896832 (Version 5)
Quarter: 2016Q2

REPORT INFORMATION
  Report Type: Report from Study
  Country: US (occurrence: US)
  Receive Date: 20160107
  Receipt Date: 20160525
  Transmission Date: 20160815
  Serious: Yes (Hospitalization)
  Sender: FDA-Public Use
  Company Number: US-ACTELION-A-NJ2015-129481

PATIENT
  Age: 57 Year
  Sex: Female

DRUGS (2)
  1. VELETRI [Suspect]
     Active Substance: EPOPROSTENOL
     Indication: PULMONARY ARTERIAL HYPERTENSION
     Dosage: 25.5 NG/KG, PER MIN
     Route: 042
     Dates: start: 20150917
  2. ADCIRCA [Concomitant]
     Active Substance: TADALAFIL

REACTIONS (8)
  - Gastric infection [Unknown]
  - Pain [Unknown]
  - Abdominal discomfort [Unknown]
  - Malaise [Unknown]
  - Gastric haemorrhage [Unknown]
  - Haematochezia [Unknown]
  - Herpes zoster [Unknown]
  - Weight decreased [Unknown]
